FAERS Safety Report 9099459 (Version 1)
Quarter: 2013Q1

REPORT INFORMATION
  Report Type: Spontaneous
  Country: BR (occurrence: BR)
  Receive Date: 20130214
  Receipt Date: 20130214
  Transmission Date: 20140127
  Serious: Yes (Life-Threatening, Hospitalization)
  Sender: FDA-Public Use
  Company Number: BR-BRISTOL-MYERS SQUIBB COMPANY-17248170

PATIENT
  Age: 83 Year
  Sex: Male
  Weight: 65.8 kg

DRUGS (6)
  1. COUMADIN TABS 1 MG [Suspect]
     Indication: ANTICOAGULANT THERAPY
     Dosage: INTERRUPTED ON:13NOV12
     Route: 048
     Dates: start: 20121002
  2. PROLOPA [Concomitant]
  3. COREG [Concomitant]
  4. AMARYL [Concomitant]
  5. LASIX [Concomitant]
  6. RENITEC [Concomitant]

REACTIONS (2)
  - Fall [Unknown]
  - International normalised ratio increased [Recovered/Resolved]
